FAERS Safety Report 4681551-1 (Version None)
Quarter: 2005Q2

REPORT INFORMATION
  Report Type: 
  Country: None (occurrence: None)
  Receive Date: 20050603
  Receipt Date: 20050525
  Transmission Date: 20051028
  Serious: Yes (Hospitalization)
  Sender: FDA-Public Use
  Company Number: BE-ABBOTT-05P-013-0301614-00

PATIENT
  Sex: Female
  Weight: 59 kg

DRUGS (8)
  1. HUMIRA [Suspect]
     Indication: RHEUMATOID ARTHRITIS
     Route: 058
     Dates: start: 20010329, end: 20050426
  2. HUMIRA [Suspect]
     Route: 058
     Dates: start: 20050518
  3. ACECLOFENAC [Concomitant]
     Indication: RHEUMATOID ARTHRITIS
     Route: 048
     Dates: start: 20041216
  4. RABEPRAZOLE SODIUM [Concomitant]
     Indication: OESOPHAGITIS
     Route: 048
     Dates: start: 20031231
  5. METHYLPREDNISOLONE [Concomitant]
     Indication: RHEUMATOID ARTHRITIS
     Route: 048
     Dates: start: 20010527
  6. CALCIUM GLUCONATE [Concomitant]
     Indication: OSTEOPENIA
     Route: 048
     Dates: start: 20000112
  7. ERGOCALCIFEROL [Concomitant]
     Indication: OSTEOPENIA
     Route: 048
     Dates: start: 19990101
  8. ESTRADIOL [Concomitant]
     Indication: HORMONE REPLACEMENT THERAPY
     Route: 061
     Dates: start: 20000131

REACTIONS (1)
  - HYPOACUSIS [None]
